FAERS Safety Report 8978912 (Version 5)
Quarter: 2015Q1

REPORT INFORMATION
  Report Type: Report from Study
  Country: JP (occurrence: JP)
  Receive Date: 20121221
  Receipt Date: 20150302
  Transmission Date: 20150721
  Serious: Yes (Life-Threatening, Hospitalization, Other)
  Sender: FDA-Public Use
  Company Number: JP-009507513-1205USA04837

PATIENT
  Age: 58 Year
  Sex: Male

DRUGS (13)
  1. ZOLINZA [Suspect]
     Active Substance: VORINOSTAT
     Dosage: 300 MG, QD
     Route: 048
     Dates: start: 20111124, end: 20111201
  2. ZOLINZA [Suspect]
     Active Substance: VORINOSTAT
     Dosage: 300 MG 6 DAYS A WEEK WITH 1 DAY A WEEK INTERVAL
     Route: 048
     Dates: start: 20111202, end: 20111214
  3. ZINC OXIDE. [Concomitant]
     Active Substance: ZINC OXIDE
     Indication: MYCOSIS FUNGOIDES
     Dosage: 100 G, QD
     Route: 061
     Dates: end: 20120306
  4. ZOLINZA [Suspect]
     Active Substance: VORINOSTAT
     Dosage: 300 MG 5 DAYS A WEEK WITH 2 DAY A WEEK INTERVAL
     Route: 048
     Dates: start: 20120216, end: 20120305
  5. PETROLATUM, WHITE [Concomitant]
     Active Substance: PETROLATUM
     Indication: MYCOSIS FUNGOIDES
     Dosage: 200 G, QD
     Route: 061
     Dates: start: 20120314
  6. TIGASON [Concomitant]
     Active Substance: ETRETINATE
     Indication: MYCOSIS FUNGOIDES
     Dosage: 10 MG, QD
     Route: 048
     Dates: start: 201109, end: 20111123
  7. PETROLATUM, WHITE [Concomitant]
     Active Substance: PETROLATUM
     Dosage: 100 G, QD
     Route: 061
  8. ZOLINZA [Suspect]
     Active Substance: VORINOSTAT
     Dosage: 300 MG 4 DAYS A WEEK WITH 2 DAY A WEEK INTERVAL
     Route: 048
     Dates: start: 20120801, end: 20120822
  9. ZOLINZA [Suspect]
     Active Substance: VORINOSTAT
     Indication: MYCOSIS FUNGOIDES
     Dosage: 400 MG, QD
     Route: 048
     Dates: start: 20111104, end: 20111123
  10. ZOLINZA [Suspect]
     Active Substance: VORINOSTAT
     Dosage: 300 MG 5 DAYS A WEEK WITH 2 DAY A WEEK INTERVAL
     Route: 048
     Dates: start: 20111215, end: 20120125
  11. ZOLINZA [Suspect]
     Active Substance: VORINOSTAT
     Dosage: 300 MG 5 DAYS A WEEK WITH 2 DAY A WEEK INTERVAL
     Route: 048
     Dates: start: 20120313, end: 20120716
  12. ZOLINZA [Suspect]
     Active Substance: VORINOSTAT
     Dosage: 200 MG 6 DAYS A WEEK WITH 2 DAY A WEEK INTERVAL
     Route: 048
     Dates: start: 20120823
  13. PREDONINE [Concomitant]
     Active Substance: PREDNISOLONE\PREDNISOLONE ACETATE\PREDNISOLONE SODIUM SUCCINATE
     Indication: MYCOSIS FUNGOIDES
     Dosage: 15 MG, QD
     Route: 048

REACTIONS (11)
  - Anaemia [Recovered/Resolved]
  - Anaemia [Not Recovered/Not Resolved]
  - Parotitis [Recovering/Resolving]
  - Dysgeusia [Recovering/Resolving]
  - C-reactive protein increased [Recovering/Resolving]
  - Pyrexia [Recovering/Resolving]
  - Hypogeusia [Recovering/Resolving]
  - Thrombocytopenia [Recovered/Resolved]
  - Platelet count decreased [Recovering/Resolving]
  - Thrombocytopenia [Recovering/Resolving]
  - Decreased appetite [Recovering/Resolving]

NARRATIVE: CASE EVENT DATE: 20111121
